FAERS Safety Report 10263132 (Version 2)
Quarter: 2014Q2

REPORT INFORMATION
  Report Type: Report from Study
  Country: US (occurrence: US)
  Receive Date: 20140626
  Receipt Date: 20140626
  Transmission Date: 20141212
  Serious: Yes (Death)
  Sender: FDA-Public Use
  Company Number: US-MYLANLABS-2014S1002583

PATIENT
  Sex: Male

DRUGS (6)
  1. CLOZAPINE TABLETS [Suspect]
     Indication: PSYCHOTIC DISORDER
     Route: 048
     Dates: start: 20120716, end: 20131130
  2. BACLOFEN [Concomitant]
  3. ALLOPURINOL [Concomitant]
  4. CLONAZEPAM [Concomitant]
  5. FUROSEMIDE [Concomitant]
  6. SEROQUEL [Concomitant]

REACTIONS (1)
  - Death [Fatal]
